FAERS Safety Report 9436986 (Version 2)
Quarter: 2013Q3

REPORT INFORMATION
  Report Type: Spontaneous
  Country: US (occurrence: US)
  Receive Date: 20130802
  Receipt Date: 20130909
  Transmission Date: 20140515
  Serious: No
  Sender: FDA-Public Use
  Company Number: US-PFIZER INC-2013221777

PATIENT
  Age: 58 Year
  Sex: Male

DRUGS (1)
  1. SUTENT [Suspect]
     Dosage: 37.5 MG ONCE DAILY THEN 14 D OFF, CYCLIC
     Route: 048
     Dates: start: 20130411

REACTIONS (1)
  - Fatigue [Not Recovered/Not Resolved]
